FAERS Safety Report 6958163-X (Version None)
Quarter: 2010Q3

REPORT INFORMATION
  Report Type: 
  Country: None (occurrence: None)
  Receive Date: 20100831
  Receipt Date: 20100819
  Transmission Date: 20110219
  Serious: Yes (Other)
  Sender: FDA-Public Use
  Company Number: US-PFIZER INC-2010062447

PATIENT
  Sex: Female
  Weight: 57.143 kg

DRUGS (3)
  1. OGEN [Suspect]
     Indication: HORMONE REPLACEMENT THERAPY
     Dosage: UNK MG, 1X/DAY
     Route: 048
     Dates: end: 20100515
  2. ACETYLSALICYLIC ACID [Concomitant]
     Dosage: UNK
  3. TYLENOL-500 [Concomitant]
     Dosage: UNK

REACTIONS (1)
  - BRONCHITIS [None]
